FAERS Safety Report 16544883 (Version 1)
Quarter: 2019Q3

REPORT INFORMATION
  Report Type: Spontaneous
  Country: US (occurrence: US)
  Receive Date: 20190528
  Receipt Date: 20190528
  Transmission Date: 20191004
  Serious: No
  Sender: FDA-Public Use
  Company Number: None

PATIENT
  Age: 57 Year
  Sex: Female

DRUGS (1)
  1. ORENCIA [Suspect]
     Active Substance: ABATACEPT
     Indication: RHEUMATOID ARTHRITIS
     Route: 058
     Dates: start: 201903

REACTIONS (8)
  - Rash papular [None]
  - Musculoskeletal stiffness [None]
  - Bone loss [None]
  - Stomatitis [None]
  - Breast mass [None]
  - Swelling [None]
  - Pain [None]
  - Blister [None]
